FAERS Safety Report 8237373-8 (Version None)
Quarter: 2012Q1

REPORT INFORMATION
  Report Type: 
  Country: None (occurrence: None)
  Receive Date: 20120327
  Receipt Date: 20120320
  Transmission Date: 20120608
  Serious: Yes (Hospitalization)
  Sender: FDA-Public Use
  Company Number: US-PFIZER INC-2012073623

PATIENT
  Sex: Female
  Weight: 53.968 kg

DRUGS (6)
  1. ETOPOSIDE [Suspect]
     Indication: MULTIPLE MYELOMA
     Dosage: 40 MG/M2, DAY 1-4
     Route: 042
     Dates: start: 20110815, end: 20110819
  2. DECADRON [Suspect]
     Indication: MULTIPLE MYELOMA
     Dosage: 40 MG/M2, DAY 1-4
     Route: 042
     Dates: start: 20110815, end: 20110822
  3. REVLIMID [Suspect]
     Indication: MULTIPLE MYELOMA
     Dosage: UNK
  4. CISPLATIN [Suspect]
     Indication: MULTIPLE MYELOMA
     Dosage: 10 MG/M2, DAY 1-4
     Route: 042
     Dates: start: 20110815, end: 20110819
  5. ADRIAMYCIN PFS [Suspect]
     Indication: MULTIPLE MYELOMA
     Dosage: 10 MG/M2, DAY 1-4
     Route: 042
     Dates: start: 20110815, end: 20110819
  6. CYTOXAN [Suspect]
     Indication: MULTIPLE MYELOMA
     Dosage: 400 MG/M2, DAY 1-4
     Route: 042
     Dates: start: 20110815, end: 20110819

REACTIONS (1)
  - FEBRILE NEUTROPENIA [None]
